FAERS Safety Report 4961759-8 (Version None)
Quarter: 2006Q2

REPORT INFORMATION
  Report Type: 
  Country: None (occurrence: None)
  Receive Date: 20060404
  Receipt Date: 20060327
  Transmission Date: 20061013
  Serious: Yes (Hospitalization)
  Sender: FDA-Public Use
  Company Number: 2006AP01458

PATIENT
  Age: 84 Year
  Sex: Female

DRUGS (5)
  1. SEROQUEL [Suspect]
     Route: 048
     Dates: start: 20060308, end: 20060311
  2. TETRAMIDE [Concomitant]
     Route: 048
     Dates: start: 20060303
  3. AMINOFLUID [Concomitant]
     Route: 041
     Dates: start: 20060307, end: 20060311
  4. NEOLAMIN 3B [Concomitant]
     Route: 041
     Dates: start: 20060307, end: 20060311
  5. ASTEMARINE-3 [Concomitant]
     Route: 041
     Dates: start: 20060307, end: 20060311

REACTIONS (1)
  - PLATELET COUNT DECREASED [None]
